FAERS Safety Report 8145307-X (Version None)
Quarter: 2012Q1

REPORT INFORMATION
  Report Type: 
  Country: None (occurrence: None)
  Receive Date: 20120103
  Receipt Date: 20110924
  Transmission Date: 20120608
  Serious: No
  Sender: FDA-Public Use
  Company Number: AE-2011-001809

PATIENT
  Age: 40 Year
  Sex: Female
  Weight: 88.4514 kg

DRUGS (6)
  1. INCIVEK [Suspect]
     Dosage: 3 IN ID, ORAL
     Route: 048
     Dates: start: 20110911
  2. PAXIL [Concomitant]
  3. LYRICA [Concomitant]
  4. RIBAVIRIN [Concomitant]
  5. PRILOSEC [Concomitant]
  6. PEGINTERFERON (PEGINTERFERON ALFA-2A [Concomitant]

REACTIONS (1)
  - NAUSEA [None]
